FAERS Safety Report 9393479 (Version 1)
Quarter: 2013Q3

REPORT INFORMATION
  Report Type: Spontaneous
  Country: US (occurrence: None)
  Receive Date: 20130709
  Receipt Date: 20130709
  Transmission Date: 20140515
  Serious: Yes (Life-Threatening)
  Sender: FDA-Public Use
  Company Number: None

PATIENT
  Age: 48 Year
  Sex: Male
  Weight: 87 kg

DRUGS (1)
  1. GADOLINIUM [Suspect]
     Route: 040
     Dates: start: 20130529, end: 20130529

REACTIONS (5)
  - Respiratory distress [None]
  - Abdominal pain [None]
  - Flushing [None]
  - Respiratory rate increased [None]
  - Intra-abdominal pressure increased [None]
